FAERS Safety Report 8947619 (Version 1)
Quarter: 2012Q4

REPORT INFORMATION
  Report Type: 
  Country: DZ (occurrence: DZ)
  Receive Date: 20121205
  Receipt Date: 20121205
  Transmission Date: 20130627
  Serious: Yes (Other)
  Sender: FDA-Public Use
  Company Number: DZ-ROCHE-1160490

PATIENT

DRUGS (1)
  1. TRASTUZUMAB [Suspect]
     Indication: BREAST CANCER
     Route: 065

REACTIONS (2)
  - Congestive cardiomyopathy [Unknown]
  - Mitral valve incompetence [Unknown]
